FAERS Safety Report 8994547 (Version 1)
Quarter: 2013Q1

REPORT INFORMATION
  Report Type: Spontaneous
  Country: US (occurrence: US)
  Receive Date: 20130102
  Receipt Date: 20130102
  Transmission Date: 20140127
  Serious: No
  Sender: FDA-Public Use
  Company Number: US-AMGEN-USASP2012079972

PATIENT
  Sex: Female

DRUGS (2)
  1. ENBREL [Suspect]
     Indication: PSORIATIC ARTHROPATHY
     Dosage: 50 MG, 2 TIMES/WK
     Dates: start: 20040130
  2. ENBREL [Suspect]
     Indication: PSORIASIS

REACTIONS (3)
  - Pain in extremity [Recovered/Resolved]
  - Therapeutic response decreased [Recovered/Resolved]
  - Psoriasis [Recovered/Resolved]
